FAERS Safety Report 8637118 (Version 2)
Quarter: 2013Q2

REPORT INFORMATION
  Report Type: Spontaneous
  Country: US (occurrence: US)
  Receive Date: 20120627
  Receipt Date: 20130617
  Transmission Date: 20140414
  Serious: Yes (Hospitalization, Disabling)
  Sender: FDA-Public Use
  Company Number: US-ASTRAZENECA-2012SE35556

PATIENT
  Age: 48 Year
  Sex: Female
  Weight: 76.2 kg

DRUGS (17)
  1. NEXIUM [Suspect]
     Indication: GASTROOESOPHAGEAL REFLUX DISEASE
     Route: 048
  2. NEXIUM [Suspect]
     Indication: GASTROOESOPHAGEAL REFLUX DISEASE
     Route: 048
     Dates: start: 1999, end: 2012
  3. NEXIUM [Suspect]
     Indication: GASTROOESOPHAGEAL REFLUX DISEASE
     Route: 048
     Dates: start: 1999, end: 2009
  4. NEXIUM [Suspect]
     Indication: GASTROOESOPHAGEAL REFLUX DISEASE
     Route: 048
     Dates: start: 20041030
  5. FOSAMAX [Concomitant]
     Indication: OSTEOPOROSIS
  6. BENICAR [Concomitant]
     Indication: HYPERTENSION
  7. NAPROSYN [Concomitant]
     Indication: ARTHRALGIA
  8. LORATAB [Concomitant]
     Indication: ARTHRALGIA
  9. ULTRAM [Concomitant]
     Indication: ARTHRALGIA
  10. PUREPAC [Concomitant]
     Indication: ANXIETY
  11. FLUOXETINE [Concomitant]
     Indication: ANXIETY
  12. PROTONIX [Concomitant]
     Indication: GASTROOESOPHAGEAL REFLUX DISEASE
  13. RANITIDINE [Concomitant]
     Indication: GASTROOESOPHAGEAL REFLUX DISEASE
  14. CLONIDINE HCL [Concomitant]
     Dates: start: 20040219
  15. ALBUTEROL [Concomitant]
     Dates: start: 20040219
  16. AMOXICILLIN [Concomitant]
  17. BENICAR HCT [Concomitant]
     Dates: start: 20041030

REACTIONS (7)
  - Arthralgia [Unknown]
  - Osteoporosis [Unknown]
  - Multiple fractures [Unknown]
  - Bone disorder [Unknown]
  - Skeletal injury [Unknown]
  - Joint stiffness [Unknown]
  - Arthritis [Unknown]
